FAERS Safety Report 25312544 (Version 1)
Quarter: 2025Q2

REPORT INFORMATION
  Report Type: Spontaneous
  Country: US (occurrence: None)
  Receive Date: 20250513
  Receipt Date: 20250513
  Transmission Date: 20250717
  Serious: Yes (unspecified)
  Sender: FDA-CTU
  Company Number: None

PATIENT
  Age: 80 Year
  Sex: Male
  Weight: 98 kg

DRUGS (1)
  1. CARBOPLATIN [Suspect]
     Active Substance: CARBOPLATIN
     Indication: Neoplasm malignant
     Route: 042

REACTIONS (7)
  - Angina pectoris [None]
  - Back pain [None]
  - Vomiting [None]
  - Pruritus [None]
  - Nausea [None]
  - Chest pain [None]
  - Infusion related reaction [None]

NARRATIVE: CASE EVENT DATE: 20250415
